FAERS Safety Report 7471210-4 (Version None)
Quarter: 2011Q2

REPORT INFORMATION
  Report Type: 
  Country: None (occurrence: None)
  Receive Date: 20110510
  Receipt Date: 20110427
  Transmission Date: 20111010
  Serious: Yes (Hospitalization)
  Sender: FDA-Public Use
  Company Number: IL-GENENTECH-317989

PATIENT
  Age: 36 Year
  Sex: Female

DRUGS (2)
  1. SERETIDE [Concomitant]
     Indication: PRODUCT USED FOR UNKNOWN INDICATION
  2. XOLAIR [Suspect]
     Indication: ASTHMA
     Dosage: 300 MG, 1/MONTH
     Route: 058

REACTIONS (7)
  - TROPONIN INCREASED [None]
  - CHEST PAIN [None]
  - CARDITIS [None]
  - PAIN IN EXTREMITY [None]
  - ELECTROCARDIOGRAM ABNORMAL [None]
  - VENTRICULAR EXTRASYSTOLES [None]
  - MUSCULOSKELETAL PAIN [None]
